FAERS Safety Report 8355970-6 (Version None)
Quarter: 2012Q2

REPORT INFORMATION
  Report Type: 
  Country: None (occurrence: None)
  Receive Date: 20120511
  Receipt Date: 20120511
  Transmission Date: 20120825
  Serious: No
  Sender: FDA-Public Use
  Company Number: None

PATIENT
  Sex: Female

DRUGS (1)
  1. ATROVENT HFA [Suspect]
     Dosage: INHALE 2 PUFFS FOUR TIMES A DAY
     Route: 055
     Dates: start: 20120415

REACTIONS (3)
  - PRODUCT QUALITY ISSUE [None]
  - BURNING SENSATION [None]
  - DEVICE LEAKAGE [None]
